FAERS Safety Report 4917423-4 (Version None)
Quarter: 2006Q1

REPORT INFORMATION
  Report Type: 
  Country: None (occurrence: None)
  Receive Date: 20060221
  Receipt Date: 20050919
  Transmission Date: 20060701
  Serious: Yes (Hospitalization, Other)
  Sender: FDA-Public Use
  Company Number: US-MERCK-0509USA02884

PATIENT
  Age: 40 Year
  Sex: Female
  Weight: 70 kg

DRUGS (4)
  1. VIOXX [Suspect]
     Indication: NECK PAIN
     Route: 048
     Dates: start: 19990101, end: 20040101
  2. VIOXX [Suspect]
     Indication: BACK PAIN
     Route: 048
     Dates: start: 19990101, end: 20040101
  3. BEXTRA [Suspect]
     Route: 048
  4. CELEBREX [Suspect]
     Route: 048

REACTIONS (4)
  - BACK DISORDER [None]
  - MYOCARDIAL INFARCTION [None]
  - ULCER [None]
  - UTERINE DISORDER [None]
